FAERS Safety Report 18042915 (Version 1)
Quarter: 2020Q3

REPORT INFORMATION
  Report Type: Spontaneous
  Country: US (occurrence: US)
  Receive Date: 20200717
  Receipt Date: 20200717
  Transmission Date: 20201103
  Serious: Yes (Hospitalization)
  Sender: FDA-Public Use
  Company Number: None

PATIENT
  Age: 79 Year
  Sex: Male

DRUGS (12)
  1. OMEPRAZOLE. [Suspect]
     Active Substance: OMEPRAZOLE
  2. DULOXETINE. [Suspect]
     Active Substance: DULOXETINE
  3. GABAPENTIN. [Suspect]
     Active Substance: GABAPENTIN
  4. LINZESS [Suspect]
     Active Substance: LINACLOTIDE
  5. LOSARTAN POT [Suspect]
     Active Substance: LOSARTAN POTASSIUM
  6. VITAMIN D3 [Suspect]
     Active Substance: CHOLECALCIFEROL
  7. FOLIC ACID. [Suspect]
     Active Substance: FOLIC ACID
  8. QVAR REDIHAL AER [Concomitant]
  9. BUMETANIDE. [Suspect]
     Active Substance: BUMETANIDE
  10. IMATNIB MES 400MG TAB [Suspect]
     Active Substance: IMATINIB MESYLATE
     Indication: PRODUCT USED FOR UNKNOWN INDICATION
     Route: 048
     Dates: start: 20180314
  11. PANTOPRAZOLE [Suspect]
     Active Substance: PANTOPRAZOLE
  12. ALBUTEROL AER [Suspect]
     Active Substance: ALBUTEROL

REACTIONS (2)
  - Haemoglobin decreased [None]
  - Gastritis [None]

NARRATIVE: CASE EVENT DATE: 202001
